FAERS Safety Report 7562695-3 (Version None)
Quarter: 2011Q2

REPORT INFORMATION
  Report Type: 
  Country: None (occurrence: None)
  Receive Date: 20110622
  Receipt Date: 20110616
  Transmission Date: 20111010
  Serious: Yes (Other)
  Sender: FDA-Public Use
  Company Number: US-PFIZER INC-2011103336

PATIENT
  Age: 90 Year
  Sex: Female

DRUGS (7)
  1. METOPROLOL [Concomitant]
     Dosage: UNK
  2. TOVIAZ [Suspect]
     Indication: POLYURIA
     Dosage: 4 MG, 1X/DAY, EVERY NIGHT AT 8 O'CLOCK
     Route: 048
     Dates: start: 20110425, end: 20110511
  3. COLACE [Concomitant]
     Dosage: UNK
  4. PREDNISONE [Concomitant]
     Indication: ARTHRITIS
     Dosage: 8 MG, 1X/DAY
  5. AMLODIPINE [Concomitant]
     Dosage: 5 MG, 1X/DAY
  6. CALCIUM CARBONATE [Concomitant]
     Dosage: UNK
  7. LOSARTAN [Concomitant]
     Dosage: 50 MG, 1X/DAY

REACTIONS (6)
  - DYSPHAGIA [None]
  - MIDDLE INSOMNIA [None]
  - THROAT TIGHTNESS [None]
  - THROAT IRRITATION [None]
  - ABDOMINAL PAIN UPPER [None]
  - DRUG INEFFECTIVE [None]
